FAERS Safety Report 4427959-0 (Version None)
Quarter: 2004Q3

REPORT INFORMATION
  Report Type: 
  Country: None (occurrence: None)
  Receive Date: 20040813
  Receipt Date: 20031201
  Transmission Date: 20050211
  Serious: No
  Sender: FDA-Public Use
  Company Number: 163-20785-03050145

PATIENT
  Age: 75 Year
  Sex: Male

DRUGS (6)
  1. THALOMID [Suspect]
     Indication: MYELODYSPLASTIC SYNDROME
     Dosage: 50-200 MG, QD, ORAL
     Route: 048
     Dates: start: 20030325, end: 20030401
  2. LIPITOR [Concomitant]
  3. VITAMINS (VITAMINS) [Concomitant]
  4. ASPIRIN [Concomitant]
  5. FOLIC ACID [Concomitant]
  6. PROCRIT (ERYTHROPOIETIN) [Concomitant]

REACTIONS (2)
  - CONDITION AGGRAVATED [None]
  - OEDEMA PERIPHERAL [None]
